FAERS Safety Report 5978248-4 (Version None)
Quarter: 2008Q4

REPORT INFORMATION
  Report Type: 
  Country: None (occurrence: None)
  Receive Date: 20081204
  Receipt Date: 20081201
  Transmission Date: 20090506
  Serious: Yes (Life-Threatening, Other)
  Sender: FDA-Public Use
  Company Number: JP-BRISTOL-MYERS SQUIBB COMPANY-14426225

PATIENT
  Age: 80 Decade
  Sex: Female

DRUGS (2)
  1. AVAPRO [Suspect]
     Indication: HYPERTENSION
     Route: 048
  2. CALBLOCK [Concomitant]
     Route: 048

REACTIONS (3)
  - DEHYDRATION [None]
  - GASTROENTERITIS [None]
  - RENAL FAILURE [None]
